FAERS Safety Report 12210279 (Version 1)
Quarter: 2016Q1

REPORT INFORMATION
  Report Type: Spontaneous
  Country: IT (occurrence: IT)
  Receive Date: 20160325
  Receipt Date: 20160325
  Transmission Date: 20160526
  Serious: Yes (Death, Hospitalization)
  Sender: FDA-Public Use
  Company Number: IT-AUROBINDO-AUR-APL-2016-03722

PATIENT
  Age: 60 Year
  Sex: Male

DRUGS (1)
  1. RIBAVIRIN. [Suspect]
     Active Substance: RIBAVIRIN
     Indication: HEPATITIS C
     Dosage: UNK
     Route: 048
     Dates: start: 20150915, end: 20160210

REACTIONS (3)
  - Ascites [Fatal]
  - Jaundice [Fatal]
  - Cholelithiasis [Fatal]

NARRATIVE: CASE EVENT DATE: 20160210
